FAERS Safety Report 6494116-6 (Version None)
Quarter: 2009Q4

REPORT INFORMATION
  Report Type: 
  Country: None (occurrence: None)
  Receive Date: 20091214
  Receipt Date: 20090121
  Transmission Date: 20100525
  Serious: No
  Sender: FDA-Public Use
  Company Number: US-BRISTOL-MYERS SQUIBB COMPANY-14461164

PATIENT
  Age: 16 Year
  Sex: Male
  Weight: 66 kg

DRUGS (5)
  1. ABILIFY [Suspect]
     Indication: AUTISM
     Dosage: INITIAL DOSE 2MG ON 13NOV2008
     Route: 048
     Dates: start: 20081113
  2. ABILIFY [Suspect]
     Indication: AGGRESSION
     Dosage: INITIAL DOSE 2MG ON 13NOV2008
     Route: 048
     Dates: start: 20081113
  3. ABILIFY [Suspect]
     Indication: AUTISM SPECTRUM DISORDER
     Dosage: INITIAL DOSE 2MG ON 13NOV2008
     Route: 048
     Dates: start: 20081113
  4. ABILIFY [Suspect]
     Indication: AGITATION
     Dosage: INITIAL DOSE 2MG ON 13NOV2008
     Route: 048
     Dates: start: 20081113
  5. KLONOPIN [Concomitant]
     Route: 048

REACTIONS (2)
  - HEAD BANGING [None]
  - TACHYPHRENIA [None]
